FAERS Safety Report 7574971-9 (Version None)
Quarter: 2011Q2

REPORT INFORMATION
  Report Type: 
  Country: None (occurrence: None)
  Receive Date: 20110627
  Receipt Date: 20110120
  Transmission Date: 20111010
  Serious: Yes (Other)
  Sender: FDA-Public Use
  Company Number: US-BAYER-201029739NA

PATIENT
  Age: 44 Year
  Sex: Female
  Weight: 49.887 kg

DRUGS (7)
  1. YASMIN [Suspect]
     Indication: CONTRACEPTION
     Route: 048
     Dates: start: 20021201, end: 20091201
  2. ZANTAC [Concomitant]
  3. YASMIN [Suspect]
     Dosage: UNK
     Dates: start: 20021201, end: 20080801
  4. TORADOL [Concomitant]
     Indication: PAIN
     Dosage: UNK
     Route: 030
     Dates: start: 20070531
  5. ROZEREM [Concomitant]
  6. DROSPIRENONE AND ETHINYL ESTRADIOL [Suspect]
     Indication: CONTRACEPTION
     Route: 048
     Dates: start: 20021201, end: 20091201
  7. IBUPROFEN [Concomitant]

REACTIONS (3)
  - CHOLECYSTITIS CHRONIC [None]
  - ABDOMINAL PAIN [None]
  - CHOLELITHIASIS [None]
